FAERS Safety Report 6974229-2 (Version None)
Quarter: 2010Q3

REPORT INFORMATION
  Report Type: 
  Country: None (occurrence: None)
  Receive Date: 20100909
  Receipt Date: 20081121
  Transmission Date: 20110219
  Serious: No
  Sender: FDA-Public Use
  Company Number: US-WYE-H03799808

PATIENT
  Age: 82 Year
  Sex: Female

DRUGS (5)
  1. CORDARONE [Suspect]
     Indication: ATRIAL FIBRILLATION
     Dosage: ^MASSIVE DOSES^
     Route: 042
     Dates: start: 20080101, end: 20080101
  2. LORAZEPAM [Concomitant]
  3. DIGOXIN [Concomitant]
  4. CORDARONE [Suspect]
     Dosage: LOADING AT 200 MG BID
     Route: 048
     Dates: start: 20080101
  5. WARFARIN [Concomitant]

REACTIONS (13)
  - ANXIETY [None]
  - ASTHENIA [None]
  - CRYING [None]
  - DECREASED APPETITE [None]
  - DEPRESSION [None]
  - DIZZINESS [None]
  - GAIT DISTURBANCE [None]
  - HYPOTONIA [None]
  - INSOMNIA [None]
  - NAUSEA [None]
  - PARAESTHESIA [None]
  - VISION BLURRED [None]
  - WEIGHT DECREASED [None]
